FAERS Safety Report 4706086-9 (Version None)
Quarter: 2005Q2

REPORT INFORMATION
  Report Type: 
  Country: None (occurrence: None)
  Receive Date: 20050627
  Receipt Date: 20050207
  Transmission Date: 20051028
  Serious: Yes (Other)
  Sender: FDA-Public Use
  Company Number: US-JNJFOC-20050200939

PATIENT
  Age: 36 Year
  Sex: Male

DRUGS (6)
  1. DURAGESIC-100 [Suspect]
     Indication: PAIN
     Dosage: TRANSDERMAL
     Route: 062
     Dates: start: 20050125, end: 20050126
  2. VICODIN [Concomitant]
  3. VALIUM [Concomitant]
  4. ZANTAC [Concomitant]
  5. PAXIL [Concomitant]
  6. FLEXERIL [Concomitant]

REACTIONS (5)
  - AGGRESSION [None]
  - AGITATION [None]
  - AMNESIA [None]
  - CONFUSIONAL STATE [None]
  - LOSS OF CONSCIOUSNESS [None]
